FAERS Safety Report 17892018 (Version 2)
Quarter: 2020Q2

REPORT INFORMATION
  Report Type: Report from Study
  Country: None (occurrence: BR)
  Receive Date: 20200613
  Receipt Date: 20200617
  Transmission Date: 20200714
  Serious: Yes (Hospitalization, Other)
  Sender: FDA-Public Use
  Company Number: BR-ABBVIE-20K-020-3440523-00

PATIENT
  Age: 61 Year
  Sex: Female
  Weight: 75 kg

DRUGS (2)
  1. HUMIRA [Suspect]
     Active Substance: ADALIMUMAB
     Dosage: UNSPECIFIED DOSE
     Route: 058
     Dates: end: 20191212
  2. HUMIRA [Suspect]
     Active Substance: ADALIMUMAB
     Indication: CROHN^S DISEASE
     Dosage: UNSPECIFIED DOSE?LOADING DOSE
     Route: 058
     Dates: start: 20090101, end: 20090101

REACTIONS (7)
  - Peripheral swelling [Unknown]
  - Cholelithiasis [Unknown]
  - Weight decreased [Unknown]
  - Obstructive pancreatitis [Unknown]
  - Hepatic steatosis [Unknown]
  - Swelling [Unknown]
  - Asthma [Not Recovered/Not Resolved]

NARRATIVE: CASE EVENT DATE: 2015
